FAERS Safety Report 25255751 (Version 1)
Quarter: 2025Q2

REPORT INFORMATION
  Report Type: Spontaneous
  Country: US (occurrence: None)
  Receive Date: 20250429
  Receipt Date: 20250429
  Transmission Date: 20250716
  Serious: Yes (Hospitalization)
  Sender: FDA-CTU
  Company Number: None

PATIENT
  Age: 58 Year
  Sex: Male
  Weight: 130.5 kg

DRUGS (13)
  1. MOUNJARO [Suspect]
     Active Substance: TIRZEPATIDE
     Indication: Weight decreased
     Route: 030
     Dates: start: 20240401, end: 20250418
  2. MOUNJARO [Suspect]
     Active Substance: TIRZEPATIDE
     Indication: Diabetes mellitus
  3. KEPPRA [Suspect]
     Active Substance: LEVETIRACETAM
  4. METFORMIN [Concomitant]
     Active Substance: METFORMIN HYDROCHLORIDE
  5. XARELTO [Concomitant]
     Active Substance: RIVAROXABAN
  6. VITAMIN D [Concomitant]
     Active Substance: VITAMIN D NOS
  7. VITAMINS [Concomitant]
     Active Substance: VITAMINS
  8. GABAPENTIN [Concomitant]
     Active Substance: GABAPENTIN
  9. OMEPRAZOLE [Concomitant]
     Active Substance: OMEPRAZOLE
  10. SERTRALINE [Concomitant]
     Active Substance: SERTRALINE HYDROCHLORIDE
  11. CREST STORE [Concomitant]
  12. HORIZANT [Concomitant]
     Active Substance: GABAPENTIN ENACARBIL
  13. KEPPRA [Concomitant]
     Active Substance: LEVETIRACETAM

REACTIONS (4)
  - Seizure [None]
  - Adverse reaction [None]
  - Fatigue [None]
  - Mood swings [None]

NARRATIVE: CASE EVENT DATE: 20250412
